FAERS Safety Report 25286789 (Version 2)
Quarter: 2025Q2

REPORT INFORMATION
  Report Type: Spontaneous
  Country: US (occurrence: US)
  Receive Date: 20250509
  Receipt Date: 20250515
  Transmission Date: 20250717
  Serious: No
  Sender: ROCHE
  Company Number: US-ROCHE-10000278228

PATIENT
  Age: 83 Year
  Sex: Female
  Weight: 58.97 kg

DRUGS (15)
  1. ACTEMRA [Suspect]
     Active Substance: TOCILIZUMAB
     Indication: Rheumatoid arthritis
     Dosage: ONCE A WEEK, ON FRIDAY^S
     Route: 058
     Dates: start: 20250314
  2. ACTEMRA [Suspect]
     Active Substance: TOCILIZUMAB
     Indication: Arteritis
     Route: 058
     Dates: start: 20250315
  3. PREDNISONE [Concomitant]
     Active Substance: PREDNISONE
     Indication: Rheumatoid arthritis
     Dosage: TAPERING SCHEDULE
     Route: 048
     Dates: start: 20250425
  4. PREDNISONE [Concomitant]
     Active Substance: PREDNISONE
     Indication: Arteritis
     Dosage: TAPERING SCHEDULE
     Route: 048
     Dates: start: 20250411, end: 20250424
  5. PREDNISONE [Concomitant]
     Active Substance: PREDNISONE
     Dosage: TAPERING SCHEDULE
     Route: 048
     Dates: start: 20250404, end: 20250410
  6. PREDNISONE [Concomitant]
     Active Substance: PREDNISONE
     Route: 048
     Dates: start: 20250328, end: 20250403
  7. PREDNISONE [Concomitant]
     Active Substance: PREDNISONE
     Dosage: TAPERING SCHEDULE
     Route: 048
     Dates: start: 20250321, end: 20250327
  8. PREDNISONE [Concomitant]
     Active Substance: PREDNISONE
     Dosage: TAPERING SCHEDULE
     Route: 048
     Dates: start: 20250314, end: 20250320
  9. PREDNISONE [Concomitant]
     Active Substance: PREDNISONE
     Dosage: TAPERING SCHEDULE
     Route: 048
     Dates: start: 20250305, end: 20250313
  10. PREDNISONE [Concomitant]
     Active Substance: PREDNISONE
     Route: 048
     Dates: start: 2023, end: 2024
  11. VENLAFAXINE [Concomitant]
     Active Substance: VENLAFAXINE HYDROCHLORIDE
     Route: 048
  12. BACTRIM [Concomitant]
     Active Substance: SULFAMETHOXAZOLE\TRIMETHOPRIM
     Route: 048
     Dates: start: 20250314, end: 20250409
  13. VITAMIN B12 [Concomitant]
     Active Substance: CYANOCOBALAMIN
     Route: 048
  14. VITAMIN D3 [Concomitant]
     Active Substance: CHOLECALCIFEROL
     Route: 048
  15. CIMZIA [Concomitant]
     Active Substance: CERTOLIZUMAB PEGOL
     Indication: Rheumatoid arthritis
     Dates: start: 20240126, end: 20250214

REACTIONS (3)
  - Device use error [Unknown]
  - Underdose [Unknown]
  - Erythema [Unknown]

NARRATIVE: CASE EVENT DATE: 20250502
